FAERS Safety Report 18579066 (Version 1)
Quarter: 2020Q4

REPORT INFORMATION
  Report Type: Spontaneous
  Country: US (occurrence: US)
  Receive Date: 20201203
  Receipt Date: 20201203
  Transmission Date: 20210114
  Serious: Yes (Hospitalization)
  Sender: FDA-Public Use
  Company Number: None

PATIENT
  Age: 81 Year
  Sex: Male

DRUGS (12)
  1. OMEPRAZOLE. [Concomitant]
     Active Substance: OMEPRAZOLE
  2. CARVEDILOL. [Concomitant]
     Active Substance: CARVEDILOL
  3. ZYRTEC [Concomitant]
     Active Substance: CETIRIZINE HYDROCHLORIDE
  4. ALLOPURINOL. [Concomitant]
     Active Substance: ALLOPURINOL
  5. EZETIM/SIMVA [Concomitant]
  6. SILDENAFIL. [Suspect]
     Active Substance: SILDENAFIL
     Indication: ESSENTIAL THROMBOCYTHAEMIA
     Route: 048
     Dates: start: 20201006
  7. FINASTERIDE. [Concomitant]
     Active Substance: FINASTERIDE
  8. TORSEMIDE. [Concomitant]
     Active Substance: TORSEMIDE
  9. FUROSEMIDE. [Concomitant]
     Active Substance: FUROSEMIDE
  10. MONTELUKAST [Concomitant]
     Active Substance: MONTELUKAST SODIUM
  11. CITALOPRAM [Concomitant]
     Active Substance: CITALOPRAM HYDROBROMIDE
  12. TAMSULOSIN [Concomitant]
     Active Substance: TAMSULOSIN

REACTIONS (1)
  - Pneumonia [None]

NARRATIVE: CASE EVENT DATE: 20201017
